FAERS Safety Report 5420529-7 (Version None)
Quarter: 2007Q3

REPORT INFORMATION
  Report Type: 
  Country: None (occurrence: None)
  Receive Date: 20070821
  Receipt Date: 20070606
  Transmission Date: 20080115
  Serious: No
  Sender: FDA-Public Use
  Company Number: US-KINGPHARMUSA00001-K200700699

PATIENT

DRUGS (3)
  1. CYTOMEL [Suspect]
     Dosage: 12.5 MCG, BID
     Route: 048
     Dates: start: 20061101
  2. SYNTHROID [Concomitant]
     Dosage: 50 MCG, QD
  3. SYNTHROID [Concomitant]
     Dosage: 75 MCG, QD

REACTIONS (3)
  - BLOOD THYROID STIMULATING HORMONE INCREASED [None]
  - LABORATORY TEST ABNORMAL [None]
  - MALABSORPTION [None]
